FAERS Safety Report 6076796-2 (Version None)
Quarter: 2009Q1

REPORT INFORMATION
  Report Type: 
  Country: None (occurrence: None)
  Receive Date: 20090213
  Receipt Date: 20090202
  Transmission Date: 20090719
  Serious: Yes (Hospitalization)
  Sender: FDA-Public Use
  Company Number: US-BIOGENIDEC-2009BI000699

PATIENT
  Age: 0 Day
  Sex: Female

DRUGS (2)
  1. AVONEX [Suspect]
     Indication: DRUG EXPOSURE DURING PREGNANCY
     Route: 064
     Dates: start: 19960501, end: 20031101
  2. AVONEX [Suspect]
     Route: 030
     Dates: start: 20040701

REACTIONS (1)
  - UMBILICAL CORD AROUND NECK [None]
